FAERS Safety Report 6558040-2 (Version None)
Quarter: 2010Q1

REPORT INFORMATION
  Report Type: 
  Country: None (occurrence: None)
  Receive Date: 20100127
  Receipt Date: 20100127
  Transmission Date: 20100710
  Serious: Yes (Hospitalization)
  Sender: FDA-Public Use
  Company Number: None

PATIENT
  Age: 51 Year
  Sex: Female
  Weight: 68.2 kg

DRUGS (2)
  1. TAXOL [Suspect]
     Indication: BREAST CANCER
     Dosage: TAXOL 145 MG WEEKLY X 3 IV
     Route: 042
     Dates: start: 20091014, end: 20100104
  2. CISPLATIN [Suspect]
     Indication: BREAST CANCER
     Dosage: CISPLATIN 45 MG WEEKLY X 3 IV
     Route: 042
     Dates: start: 20091014, end: 20100104

REACTIONS (1)
  - MALIGNANT PLEURAL EFFUSION [None]
